FAERS Safety Report 8590884-8 (Version None)
Quarter: 2012Q3

REPORT INFORMATION
  Report Type: 
  Country: None (occurrence: None)
  Receive Date: 20120813
  Receipt Date: 20120802
  Transmission Date: 20120928
  Serious: Yes (Hospitalization, Other)
  Sender: FDA-Public Use
  Company Number: GB-TEVA-340755ISR

PATIENT
  Age: 81 Year
  Sex: Male
  Weight: 68 kg

DRUGS (16)
  1. AZILECT [Interacting]
     Dosage: 1 MILLIGRAM DAILY; EVERY MORNING
     Route: 048
     Dates: start: 20120511
  2. PROPOFOL [Concomitant]
     Indication: INDUCTION OF ANAESTHESIA
     Route: 042
     Dates: start: 20120420
  3. CISATRACURIUM BESYLATE [Concomitant]
     Indication: INDUCTION OF ANAESTHESIA
     Dosage: AND FURTHER 8MG DOSE 20/4/2012 AFTER INCREASE IN BLOOD PRESSURE. ALSO GIVEN 9/5/2012, 18MG.
     Route: 042
     Dates: start: 20120420
  4. ATORVASTATIN [Concomitant]
  5. BISOPROLOL [Concomitant]
  6. PHENYLEPHRINE HYDROCHLORIDE [Interacting]
     Indication: INDUCTION OF ANAESTHESIA
     Route: 042
     Dates: start: 20120420, end: 20120420
  7. AMLODIPINE [Concomitant]
  8. ISOSORBIDE MONONITRATE [Concomitant]
  9. FENTANYL [Concomitant]
     Indication: INDUCTION OF ANAESTHESIA
     Route: 042
     Dates: start: 20120420
  10. LISINOPRIL [Concomitant]
  11. STALEVO 100/25/200MG [Concomitant]
     Indication: PARKINSON'S DISEASE
     Dosage: 4 DOSAGE FORMS DAILY; 100 MG LEVODOPA, 25 MG CARBIDOPA AND 200 MG ENTACAPONE
     Route: 042
     Dates: start: 20120420
  12. CO-BENELDOPA 12.5/50 [Concomitant]
     Indication: PARKINSON'S DISEASE
     Dosage: BENSERAZIDE 12.5 MG, LEVODOPA 50 MG
     Route: 042
     Dates: start: 20120420
  13. ASPIRIN [Concomitant]
  14. AZILECT [Suspect]
     Indication: PARKINSON'S DISEASE
     Dosage: 1 MILLIGRAM DAILY; EVERY MORNING
     Route: 048
     Dates: start: 20120404, end: 20120424
  15. MULTI-VITAMINS [Concomitant]
  16. LANSOPRAZOLE [Concomitant]

REACTIONS (4)
  - HYPERTENSIVE CRISIS [None]
  - BLOOD PRESSURE INCREASED [None]
  - INHIBITORY DRUG INTERACTION [None]
  - ANAESTHETIC COMPLICATION [None]
